FAERS Safety Report 6023662-4 (Version None)
Quarter: 2008Q4

REPORT INFORMATION
  Report Type: 
  Country: None (occurrence: None)
  Receive Date: 20081229
  Receipt Date: 20081229
  Transmission Date: 20090506
  Serious: Yes (Life-Threatening, Other)
  Sender: FDA-Public Use
  Company Number: None

PATIENT
  Sex: Male
  Weight: 70.3075 kg

DRUGS (6)
  1. PROAIR HFA [Suspect]
     Indication: ASTHMA
     Dosage: 2PUFFS AS NEEDED;4XDAY PO
     Route: 048
     Dates: start: 20081103, end: 20081220
  2. PROAIR HFA [Suspect]
     Indication: CHRONIC OBSTRUCTIVE PULMONARY DISEASE
     Dosage: 2PUFFS AS NEEDED;4XDAY PO
     Route: 048
     Dates: start: 20081103, end: 20081220
  3. PROAIR HFA [Suspect]
     Indication: INHALATION THERAPY
     Dosage: 2PUFFS AS NEEDED;4XDAY PO
     Route: 048
     Dates: start: 20081103, end: 20081220
  4. PROVENTIL-HFA [Suspect]
     Indication: ASTHMA
     Dosage: 2 PUFFS 4XDAY, 2PUFFS PO
     Route: 048
     Dates: start: 20081222, end: 20081225
  5. PROVENTIL-HFA [Suspect]
     Indication: CHRONIC OBSTRUCTIVE PULMONARY DISEASE
     Dosage: 2 PUFFS 4XDAY, 2PUFFS PO
     Route: 048
     Dates: start: 20081222, end: 20081225
  6. PROVENTIL-HFA [Suspect]
     Indication: INHALATION THERAPY
     Dosage: 2 PUFFS 4XDAY, 2PUFFS PO
     Route: 048
     Dates: start: 20081222, end: 20081225

REACTIONS (7)
  - CHEST DISCOMFORT [None]
  - DIZZINESS [None]
  - DRUG HYPERSENSITIVITY [None]
  - HEADACHE [None]
  - LOWER RESPIRATORY TRACT INFECTION [None]
  - MALAISE [None]
  - THROAT TIGHTNESS [None]
